FAERS Safety Report 13991152 (Version 2)
Quarter: 2019Q4

REPORT INFORMATION
  Report Type: Spontaneous
  Country: JP (occurrence: JP)
  Receive Date: 20170920
  Receipt Date: 20191105
  Transmission Date: 20200122
  Serious: Yes (Other)
  Sender: FDA-Public Use
  Company Number: JP-SUN PHARMACEUTICAL INDUSTRIES LTD-2017R3-150000

PATIENT
  Age: 33 Year
  Sex: Female
  Weight: 51 kg

DRUGS (1)
  1. APRESOLINE HYDROCHLORIDE [Suspect]
     Active Substance: HYDRALAZINE HYDROCHLORIDE
     Indication: HYPERTENSIVE NEPHROPATHY
     Dosage: UNK
     Route: 048

REACTIONS (5)
  - Blood creatinine increased [Unknown]
  - Drug ineffective [Unknown]
  - Live birth [Unknown]
  - Exposure during pregnancy [Unknown]
  - Protein urine present [Unknown]
